FAERS Safety Report 7388105-7 (Version None)
Quarter: 2011Q2

REPORT INFORMATION
  Report Type: 
  Country: None (occurrence: None)
  Receive Date: 20110401
  Receipt Date: 20110318
  Transmission Date: 20111010
  Serious: Yes (Hospitalization, Other)
  Sender: FDA-Public Use
  Company Number: US-ELI_LILLY_AND_COMPANY-US201102002681

PATIENT
  Sex: Female

DRUGS (14)
  1. LIPITOR [Concomitant]
  2. WELLBUTRIN [Concomitant]
  3. AMBIEN [Concomitant]
  4. FORTEO [Suspect]
     Indication: OSTEOPOROSIS
     Dosage: 20 UG, DAILY (1/D)
     Route: 065
     Dates: start: 20101203, end: 20110201
  5. PREVACID [Concomitant]
  6. KLOZAPIN [Concomitant]
  7. TRILIPIX [Concomitant]
  8. DILTIAZEM [Concomitant]
  9. LEXAPRO [Concomitant]
  10. FISH OIL [Concomitant]
  11. XANAX [Concomitant]
  12. FIORICET [Concomitant]
  13. VITAMIN D [Concomitant]
  14. IRON [Concomitant]

REACTIONS (5)
  - ALOPECIA [None]
  - PNEUMONIA [None]
  - MASTECTOMY [None]
  - CATARACT OPERATION [None]
  - STRESS [None]
